FAERS Safety Report 14673381 (Version 1)
Quarter: 2018Q1

REPORT INFORMATION
  Report Type: Spontaneous
  Country: US (occurrence: US)
  Receive Date: 20180322
  Receipt Date: 20180322
  Transmission Date: 20180509
  Serious: No
  Sender: FDA-Public Use
  Company Number: None

PATIENT
  Age: 58 Year
  Sex: Female
  Weight: 65.7 kg

DRUGS (6)
  1. HYDROCORTISONE 5 MG TABLET [Suspect]
     Active Substance: HYDROCORTISONE
     Indication: ADRENAL INSUFFICIENCY
     Dosage: ?          QUANTITY:360 TABLET(S);?
     Route: 048
     Dates: start: 20180214, end: 20180224
  2. DHEA [Concomitant]
     Active Substance: PRASTERONE
  3. HYDROCORTISONE. [Concomitant]
     Active Substance: HYDROCORTISONE
  4. CALCIUM WITH VITAMINE D. [Concomitant]
  5. OMEGA 3 FISH OIL [Concomitant]
     Active Substance: FISH OIL\OMEGA-3 FATTY ACIDS
  6. LEVOTHYROXINE. [Concomitant]
     Active Substance: LEVOTHYROXINE

REACTIONS (4)
  - Overdose [None]
  - Product substitution issue [None]
  - Product packaging quantity issue [None]
  - Product quality issue [None]

NARRATIVE: CASE EVENT DATE: 20180301
